FAERS Safety Report 5400580-3 (Version None)
Quarter: 2007Q3

REPORT INFORMATION
  Report Type: 
  Country: None (occurrence: None)
  Receive Date: 20070730
  Receipt Date: 20070718
  Transmission Date: 20080115
  Serious: Yes (Other)
  Sender: FDA-Public Use
  Company Number: IT-BRISTOL-MYERS SQUIBB COMPANY-13857479

PATIENT

DRUGS (5)
  1. ATAZANAVIR SULFATE [Suspect]
     Indication: HIV INFECTION
  2. DIDANOSINE [Suspect]
     Indication: HIV INFECTION
  3. ATENOLOL [Suspect]
  4. SAQUINAVIR [Suspect]
  5. LAMIVUDINE [Suspect]

REACTIONS (3)
  - BRADYARRHYTHMIA [None]
  - ELECTROCARDIOGRAM QRS COMPLEX PROLONGED [None]
  - VENTRICULAR EXTRASYSTOLES [None]
